FAERS Safety Report 14508420 (Version 1)
Quarter: 2018Q1

REPORT INFORMATION
  Report Type: Spontaneous
  Country: CN (occurrence: CN)
  Receive Date: 20180209
  Receipt Date: 20180209
  Transmission Date: 20180509
  Serious: Yes (Other)
  Sender: FDA-Public Use
  Company Number: CN-BAXTER-2018BAX004220

PATIENT
  Age: 58 Year
  Sex: Male
  Weight: 62 kg

DRUGS (9)
  1. 20% MANNITOL INJECTION [Suspect]
     Active Substance: MANNITOL
     Dosage: ABOUT 100ML OF 125 ML IN THE 5TH SET OF FLUID
     Route: 041
     Dates: start: 20171223, end: 20171223
  2. 20% MANNITOL INJECTION [Suspect]
     Active Substance: MANNITOL
     Route: 041
     Dates: start: 20171223
  3. 20% MANNITOL INJECTION [Suspect]
     Active Substance: MANNITOL
     Indication: OEDEMA
     Route: 041
     Dates: start: 20171222, end: 20171222
  4. SODIUM CHLORIDE. [Suspect]
     Active Substance: SODIUM CHLORIDE
     Dosage: SOLVENT FOR METHYCOBAL (MECOBALAMIN INJECTION)
     Route: 041
     Dates: start: 20171223, end: 20171223
  5. SODIUM CHLORIDE. [Suspect]
     Active Substance: SODIUM CHLORIDE
     Indication: MEDICATION DILUTION
     Dosage: SOLVENT FOR HARBIN MEDISAN (LORNOXICAM FOR INJECTION)
     Route: 041
     Dates: start: 20171223, end: 20171223
  6. AOXIKANG [Suspect]
     Active Substance: OMEPRAZOLE SODIUM
     Indication: GASTRIC PERFORATION
     Route: 041
     Dates: start: 20171223, end: 20171223
  7. METHYCOBAL [Suspect]
     Active Substance: METHYLCOBALAMIN
     Indication: SUPPLEMENTATION THERAPY
     Route: 041
     Dates: start: 20171223, end: 20171223
  8. SODIUM CHLORIDE. [Suspect]
     Active Substance: SODIUM CHLORIDE
     Dosage: SOLVENT FOR AOXIKANG (OMEPRAZOLE SODIUM FOR INJECTION)
     Route: 041
     Dates: start: 20171223, end: 20171223
  9. HARBIN MEDISAN (LORNOXICAM) [Suspect]
     Active Substance: LORNOXICAM
     Indication: PAIN MANAGEMENT
     Route: 041
     Dates: start: 20171223, end: 20171223

REACTIONS (2)
  - Chest discomfort [Recovering/Resolving]
  - Cold sweat [Recovering/Resolving]

NARRATIVE: CASE EVENT DATE: 20171223
